FAERS Safety Report 8480177 (Version 3)
Quarter: 2012Q4

REPORT INFORMATION
  Report Type: Report from Study
  Country: FR (occurrence: FR)
  Receive Date: 20120328
  Receipt Date: 20120927
  Transmission Date: 20130627
  Serious: Yes (Other)
  Sender: FDA-Public Use
  Company Number: FR-ASTRAZENECA-2009SE10854

PATIENT
  Sex: Female

DRUGS (1)
  1. ARIMIDEX [Suspect]
     Indication: BREAST CANCER FEMALE
     Route: 048
     Dates: start: 20070319

REACTIONS (6)
  - Fall [Unknown]
  - Loss of consciousness [Unknown]
  - Hand fracture [Unknown]
  - Abdominal pain upper [Unknown]
  - Asthenia [Unknown]
  - Arthralgia [Unknown]
